FAERS Safety Report 8445972-3 (Version None)
Quarter: 2012Q2

REPORT INFORMATION
  Report Type: 
  Country: None (occurrence: None)
  Receive Date: 20120618
  Receipt Date: 20120615
  Transmission Date: 20120825
  Serious: No
  Sender: FDA-Public Use
  Company Number: US-PFIZER INC-2012145186

PATIENT
  Sex: Male
  Weight: 99.773 kg

DRUGS (10)
  1. DIOVAN [Suspect]
     Indication: HYPERTENSION
     Dosage: 320 MG, DAILY
  2. CARDIZEM [Suspect]
     Indication: HYPERTENSION
     Dosage: 240 MG, 2X/DAY
  3. METFORMIN [Concomitant]
     Indication: TYPE 2 DIABETES MELLITUS
     Dosage: 500 MG, DAILY
  4. TIKOSYN [Suspect]
     Indication: HEART RATE
     Dosage: 250 UG, 2X/DAY
     Route: 048
     Dates: start: 20110101, end: 20120501
  5. METOPROLOL TARTRATE [Suspect]
     Indication: HEART RATE
  6. TIKOSYN [Suspect]
     Indication: ATRIAL FLUTTER
  7. CARDIZEM [Suspect]
     Indication: HEART RATE
  8. TIKOSYN [Suspect]
     Indication: ATRIAL FIBRILLATION
  9. METOPROLOL TARTRATE [Suspect]
     Indication: HYPERTENSION
     Dosage: 50 MG, 2X/DAY
  10. GLIPIZIDE [Concomitant]
     Indication: TYPE 2 DIABETES MELLITUS
     Dosage: 5 MG, 2X/DAY

REACTIONS (2)
  - PRIMARY HYPOTHYROIDISM [None]
  - DRUG INEFFECTIVE [None]
